FAERS Safety Report 7577733-1 (Version None)
Quarter: 2011Q2

REPORT INFORMATION
  Report Type: 
  Country: None (occurrence: None)
  Receive Date: 20110628
  Receipt Date: 20100513
  Transmission Date: 20111010
  Serious: Yes (Other)
  Sender: FDA-Public Use
  Company Number: US-PFIZER INC-2010060736

PATIENT
  Sex: Female

DRUGS (2)
  1. DEPO-SUBQ PROVERA 104 [Suspect]
     Indication: MENSTRUAL DISCOMFORT
  2. DEPO-SUBQ PROVERA 104 [Suspect]
     Indication: CONTRACEPTION
     Dosage: UNK
     Route: 058

REACTIONS (1)
  - INJECTION SITE REACTION [None]
